FAERS Safety Report 7866858-9 (Version None)
Quarter: 2011Q4

REPORT INFORMATION
  Report Type: 
  Country: None (occurrence: None)
  Receive Date: 20111028
  Receipt Date: 20110922
  Transmission Date: 20120403
  Serious: Yes (Hospitalization, Other)
  Sender: FDA-Public Use
  Company Number: BR-ROCHE-1006774

PATIENT
  Sex: Female
  Weight: 68 kg

DRUGS (8)
  1. DIPHENHYDRAMINE HCL [Concomitant]
  2. MABTHERA [Suspect]
     Indication: PRODUCT USED FOR UNKNOWN INDICATION
     Dates: start: 20110301, end: 20110301
  3. DECADRON [Concomitant]
  4. ACETAMINOPHEN [Concomitant]
     Indication: PAIN
  5. ZOFRAN [Concomitant]
  6. METHOTREXATE [Concomitant]
  7. DIPYRONE TAB [Concomitant]
  8. FLEBOCORTID [Concomitant]

REACTIONS (2)
  - MUSCULOSKELETAL DISORDER [None]
  - HYPERSENSITIVITY [None]
